FAERS Safety Report 6200112-6 (Version None)
Quarter: 2009Q2

REPORT INFORMATION
  Report Type: 
  Country: None (occurrence: None)
  Receive Date: 20090522
  Receipt Date: 20090511
  Transmission Date: 20091009
  Serious: Yes (Other)
  Sender: FDA-Public Use
  Company Number: JP-PFIZER INC-2009215207

PATIENT
  Age: 47 Year

DRUGS (4)
  1. ZOLOFT [Suspect]
     Indication: DISTURBANCE IN ATTENTION
     Dosage: UNK
     Route: 048
     Dates: start: 20090409, end: 20090410
  2. ZOLOFT [Suspect]
     Indication: MALAISE
  3. ETIZOLAM [Concomitant]
     Route: 048
     Dates: start: 20090409, end: 20090410
  4. GASMOTIN [Concomitant]
     Route: 048
     Dates: start: 20090409, end: 20090410

REACTIONS (7)
  - ABDOMINAL PAIN [None]
  - ASPARTATE AMINOTRANSFERASE INCREASED [None]
  - BLOOD CREATINE PHOSPHOKINASE INCREASED [None]
  - GASTROINTESTINAL PAIN [None]
  - HYPERTONIA [None]
  - MUSCULOSKELETAL STIFFNESS [None]
  - PAIN IN EXTREMITY [None]
